FAERS Safety Report 6203804-8 (Version None)
Quarter: 2009Q2

REPORT INFORMATION
  Report Type: 
  Country: None (occurrence: None)
  Receive Date: 20090527
  Receipt Date: 20090518
  Transmission Date: 20091009
  Serious: Yes (Hospitalization)
  Sender: FDA-Public Use
  Company Number: PHHO2009DE05336

PATIENT
  Sex: Male
  Weight: 70 kg

DRUGS (6)
  1. MYFORTIC [Suspect]
     Indication: RENAL TRANSPLANT
     Dosage: 720 MG, BID
     Route: 048
     Dates: start: 20090124, end: 20090421
  2. MYFORTIC [Suspect]
     Dosage: 720 MG, BID
     Route: 048
     Dates: start: 20090504
  3. SANDIMMUNE [Suspect]
     Indication: RENAL TRANSPLANT
     Dosage: 125 MG, BID
     Route: 048
     Dates: start: 20090124, end: 20090421
  4. DECORTIN [Suspect]
     Indication: RENAL TRANSPLANT
     Dosage: 7.5 MG, QD
     Dates: start: 20090124
  5. DECORTIN [Suspect]
     Dosage: UNK
  6. NO TREATMENT RECEIVED NOMED [Suspect]

REACTIONS (1)
  - ALVEOLITIS [None]
